FAERS Safety Report 15167226 (Version 1)
Quarter: 2018Q3

REPORT INFORMATION
  Report Type: Spontaneous
  Country: US (occurrence: US)
  Receive Date: 20180621
  Receipt Date: 20180621
  Transmission Date: 20181010
  Serious: No
  Sender: FDA-Public Use
  Company Number: None

PATIENT
  Age: 74 Year
  Sex: Male

DRUGS (1)
  1. REVLIMID [Suspect]
     Active Substance: LENALIDOMIDE
     Indication: MYELODYSPLASTIC SYNDROME
     Route: 048
     Dates: start: 20151016, end: 20151024

REACTIONS (6)
  - Drug intolerance [None]
  - Dizziness [None]
  - Syncope [None]
  - Therapy change [None]
  - Bone marrow failure [None]
  - Anaemia [None]

NARRATIVE: CASE EVENT DATE: 20150924
